FAERS Safety Report 6721052-X (Version None)
Quarter: 2010Q2

REPORT INFORMATION
  Report Type: 
  Country: None (occurrence: None)
  Receive Date: 20100512
  Receipt Date: 20100503
  Transmission Date: 20101027
  Serious: Yes (Other)
  Sender: FDA-Public Use
  Company Number: US-JNJFOC-20100500232

PATIENT
  Age: 16 Year
  Sex: Male

DRUGS (8)
  1. CONCERTA [Suspect]
     Indication: ATTENTION DEFICIT/HYPERACTIVITY DISORDER
     Route: 065
  2. CONCERTA [Suspect]
     Route: 065
  3. CONCERTA [Suspect]
     Route: 065
  4. FOCALIN [Suspect]
     Indication: DRUG USE FOR UNKNOWN INDICATION
     Route: 065
  5. FOCALIN [Suspect]
     Route: 065
  6. FOCALIN [Suspect]
     Route: 065
  7. FOCALIN [Suspect]
     Route: 065
  8. ADDERALL 30 [Suspect]
     Indication: ATTENTION DEFICIT/HYPERACTIVITY DISORDER
     Route: 065

REACTIONS (2)
  - PERIPHERAL VASCULAR DISORDER [None]
  - TACHYCARDIA [None]
